FAERS Safety Report 9537972 (Version 1)
Quarter: 2013Q3

REPORT INFORMATION
  Report Type: Spontaneous
  Country: GB (occurrence: GB)
  Receive Date: 20130919
  Receipt Date: 20130919
  Transmission Date: 20140515
  Serious: Yes (Other)
  Sender: FDA-Public Use
  Company Number: GB-WATSON-2013-16413

PATIENT
  Sex: Male

DRUGS (1)
  1. FLUOXETINE (UNKNOWN) [Suspect]
     Indication: OBSESSIVE-COMPULSIVE DISORDER
     Dosage: 60 MG, UNK
     Route: 065

REACTIONS (4)
  - Obsessive-compulsive disorder [Unknown]
  - Condition aggravated [Unknown]
  - Anxiety [Unknown]
  - Product substitution issue [Unknown]
